FAERS Safety Report 8456179-8 (Version None)
Quarter: 2012Q2

REPORT INFORMATION
  Report Type: 
  Country: None (occurrence: None)
  Receive Date: 20120621
  Receipt Date: 20120620
  Transmission Date: 20120825
  Serious: Yes (Death, Other)
  Sender: FDA-Public Use
  Company Number: PHHY2012NL024703

PATIENT
  Sex: Female

DRUGS (4)
  1. ZOMETA [Suspect]
     Dosage: 4 MG/100 ML SOLUTION FOR INFUSION EVERY 21 DAYS
     Route: 042
     Dates: start: 20111020
  2. ZOMETA [Suspect]
     Indication: LUNG CANCER METASTATIC
     Dosage: 4 MG/100 ML SOLUTION FOR INFUSION EVERY 21 DAYS
     Route: 042
  3. ZOMETA [Suspect]
     Dosage: 4 MG/100 ML SOLUTION FOR INFUSION EVERY 21 DAYS
     Route: 042
     Dates: start: 20120202
  4. ZOMETA [Suspect]
     Dosage: 4 MG/100 ML SOLUTION FOR INFUSION EVERY 21 DAYS
     Route: 042
     Dates: start: 20120301, end: 20120301

REACTIONS (4)
  - NEOPLASM PROGRESSION [None]
  - GENERAL PHYSICAL HEALTH DETERIORATION [None]
  - NEOPLASM MALIGNANT [None]
  - TERMINAL STATE [None]
